FAERS Safety Report 23824204 (Version 4)
Quarter: 2024Q4

REPORT INFORMATION
  Report Type: Report from Study
  Country: US (occurrence: US)
  Receive Date: 20240507
  Receipt Date: 20241015
  Transmission Date: 20250115
  Serious: Yes (Other)
  Sender: UCB
  Company Number: US-UCBSA-2024021928

PATIENT
  Age: 15 Year
  Sex: Female
  Weight: 65.9 kg

DRUGS (9)
  1. FINTEPLA [Suspect]
     Active Substance: FENFLURAMINE
     Indication: Severe myoclonic epilepsy of infancy
     Dosage: 4.9 MILLILITER, 2X/DAY (BID)
     Dates: start: 20200915, end: 202009
  2. FINTEPLA [Suspect]
     Active Substance: FENFLURAMINE
     Dosage: 0.23 MILLIGRAM/KILOGRAM/DAY
     Dates: start: 20200925, end: 20210216
  3. FINTEPLA [Suspect]
     Active Substance: FENFLURAMINE
     Dosage: 0.2 MILLIGRAM/KILOGRAM/DAY
     Dates: start: 20210311
  4. FINTEPLA [Suspect]
     Active Substance: FENFLURAMINE
     Dosage: 0.22 MILLIGRAM/KILOGRAM/DAY
  5. FINTEPLA [Suspect]
     Active Substance: FENFLURAMINE
     Dosage: 0.39 MILLIGRAM/KILOGRAM/DAY
  6. FINTEPLA [Suspect]
     Active Substance: FENFLURAMINE
     Dosage: 0.40 MILLIGRAM/KILOGRAM/DAILY
  7. FINTEPLA [Suspect]
     Active Substance: FENFLURAMINE
     Dosage: 0.32 MILLIGRAM/KILOGRAM/DAY
     Dates: end: 20210810
  8. FINTEPLA [Suspect]
     Active Substance: FENFLURAMINE
     Dosage: 4.9 MILLILITER, 2X/DAY (BID)
  9. FINTEPLA [Suspect]
     Active Substance: FENFLURAMINE
     Dosage: REDUCED DOSE: 0.32 MILLIGRAM/KILOGRAM, ONCE DAILY (QD)

REACTIONS (3)
  - Seizure [Not Recovered/Not Resolved]
  - Mitral valve disease [Not Recovered/Not Resolved]
  - Heart valve incompetence [Not Recovered/Not Resolved]

NARRATIVE: CASE EVENT DATE: 20240501
